FAERS Safety Report 24727361 (Version 2)
Quarter: 2024Q4

REPORT INFORMATION
  Report Type: Spontaneous
  Country: US (occurrence: US)
  Receive Date: 20241212
  Receipt Date: 20241218
  Transmission Date: 20250115
  Serious: Yes (Other)
  Sender: BIOGEN
  Company Number: US-BIOGEN-2024BI01248669

PATIENT
  Sex: Female

DRUGS (2)
  1. TYSABRI [Suspect]
     Active Substance: NATALIZUMAB
     Indication: Multiple sclerosis
     Route: 050
     Dates: start: 20230920, end: 20231120
  2. TYSABRI [Suspect]
     Active Substance: NATALIZUMAB
     Route: 050
     Dates: start: 20201218, end: 20210817

REACTIONS (7)
  - HELLP syndrome [Unknown]
  - Pre-eclampsia [Unknown]
  - Haemorrhage in pregnancy [Unknown]
  - Subchorionic haemorrhage [Unknown]
  - Maternal exposure during pregnancy [Recovered/Resolved]
  - Afterbirth pain [Unknown]
  - Morning sickness [Unknown]
